FAERS Safety Report 16275718 (Version 1)
Quarter: 2019Q2

REPORT INFORMATION
  Report Type: Spontaneous
  Country: BR (occurrence: BR)
  Receive Date: 20190504
  Receipt Date: 20190504
  Transmission Date: 20190711
  Serious: Yes (Life-Threatening, Hospitalization)
  Sender: FDA-Public Use
  Company Number: PHHY2019BR101715

PATIENT
  Sex: Male

DRUGS (1)
  1. TASIGNA [Suspect]
     Active Substance: NILOTINIB
     Indication: LEUKAEMIA
     Dosage: UNK
     Route: 065

REACTIONS (8)
  - Eye movement disorder [Unknown]
  - Myelitis transverse [Unknown]
  - Hypoaesthesia [Unknown]
  - Fallot^s tetralogy [Unknown]
  - Cardiac disorder [Unknown]
  - Urine odour abnormal [Unknown]
  - Paralysis [Unknown]
  - Chromaturia [Unknown]
